FAERS Safety Report 7375423-1 (Version None)
Quarter: 2011Q1

REPORT INFORMATION
  Report Type: 
  Country: None (occurrence: None)
  Receive Date: 20110325
  Receipt Date: 20110310
  Transmission Date: 20110831
  Serious: Yes (Other)
  Sender: FDA-Public Use
  Company Number: PHHY2010BR56712

PATIENT
  Age: 67 Year
  Sex: Female

DRUGS (2)
  1. DIOVAN AMLO FIX [Suspect]
     Indication: HYPERTENSION
  2. DIOVAN AMLO [Suspect]

REACTIONS (2)
  - POLLAKIURIA [None]
  - ARTHRITIS [None]
